FAERS Safety Report 4583556-8 (Version None)
Quarter: 2005Q1

REPORT INFORMATION
  Report Type: 
  Country: None (occurrence: None)
  Receive Date: 20050211
  Receipt Date: 20050131
  Transmission Date: 20050727
  Serious: Yes (Disabling)
  Sender: FDA-Public Use
  Company Number: 2005CG00230

PATIENT
  Age: 76 Year
  Sex: Female

DRUGS (3)
  1. XYLOCAINE [Suspect]
     Indication: LOCAL ANAESTHESIA
     Dates: start: 20040923, end: 20040923
  2. INDOCOLLYRE [Suspect]
     Dates: start: 20040923
  3. MAXIDROL [Concomitant]

REACTIONS (4)
  - ENDOPHTHALMITIS [None]
  - EYE INFECTION STAPHYLOCOCCAL [None]
  - OFF LABEL USE [None]
  - POST PROCEDURAL COMPLICATION [None]
